FAERS Safety Report 6583633-6 (Version None)
Quarter: 2010Q1

REPORT INFORMATION
  Report Type: 
  Country: None (occurrence: None)
  Receive Date: 20100216
  Receipt Date: 20100203
  Transmission Date: 20100710
  Serious: Yes (Hospitalization)
  Sender: FDA-Public Use
  Company Number: AU-B.I. PHARMACEUTICALS,INC./RIDGEFIELD-2010-AU-00108AU

PATIENT
  Sex: Male
  Weight: 72 kg

DRUGS (1)
  1. SIFROL [Suspect]
     Dosage: 4.5 MG

REACTIONS (1)
  - EOSINOPHILIC PNEUMONIA [None]
